FAERS Safety Report 5411955-0 (Version None)
Quarter: 2007Q3

REPORT INFORMATION
  Report Type: 
  Country: None (occurrence: None)
  Receive Date: 20070810
  Receipt Date: 20070810
  Transmission Date: 20080115
  Serious: Yes (Death, Hospitalization)
  Sender: FDA-Public Use
  Company Number: None

PATIENT
  Sex: Female
  Weight: 13 kg

DRUGS (4)
  1. CYCLOPHOSPHAMIDE [Suspect]
     Dosage: 1705 MG
  2. DOXORUBICIN HYDROCHLORIDE [Suspect]
     Dosage: 18 MG
  3. ETOPOSIDE [Suspect]
     Dosage: 200 MG
  4. VINCRISTINE SULFATE [Suspect]
     Dosage: 2.2 MG

REACTIONS (12)
  - ABDOMINAL DISTENSION [None]
  - BLOOD PH DECREASED [None]
  - CARDIAC ARREST [None]
  - ELECTROMECHANICAL DISSOCIATION [None]
  - FUNGAL SEPSIS [None]
  - LUNG CONSOLIDATION [None]
  - LUNG NEOPLASM [None]
  - NEUTROPENIA [None]
  - PYREXIA [None]
  - SYSTEMIC CANDIDA [None]
  - TACHYCARDIA [None]
  - TACHYPNOEA [None]
